FAERS Safety Report 18987486 (Version 3)
Quarter: 2021Q3

REPORT INFORMATION
  Report Type: Spontaneous
  Country: ES (occurrence: ES)
  Receive Date: 20210309
  Receipt Date: 20210709
  Transmission Date: 20211014
  Serious: Yes (Other)
  Sender: FDA-Public Use
  Company Number: ES-ELI_LILLY_AND_COMPANY-ES202103001014

PATIENT
  Age: 40 Year
  Sex: Male
  Weight: 122 kg

DRUGS (4)
  1. TALTZ [Suspect]
     Active Substance: IXEKIZUMAB
     Indication: PSORIASIS
     Dosage: UNK UNK, UNKNOWN
     Route: 065
     Dates: start: 20201228
  2. TALTZ [Suspect]
     Active Substance: IXEKIZUMAB
     Indication: ARTHROPATHY
  3. METFORMIN [Concomitant]
     Active Substance: METFORMIN HYDROCHLORIDE
     Indication: DIABETES MELLITUS
  4. INSULIN [Concomitant]
     Active Substance: INSULIN NOS
     Indication: DIABETES MELLITUS

REACTIONS (7)
  - Laryngospasm [Recovered/Resolved]
  - Apnoea [Unknown]
  - Palatal oedema [Unknown]
  - Dyspnoea [Unknown]
  - Cough [Unknown]
  - Laryngeal discomfort [Recovered/Resolved]
  - Erythema [Unknown]

NARRATIVE: CASE EVENT DATE: 20201228
